FAERS Safety Report 25703876 (Version 1)
Quarter: 2025Q3

REPORT INFORMATION
  Report Type: 
  Country: CN (occurrence: CN)
  Receive Date: 20250820
  Receipt Date: 20250820
  Transmission Date: 20251021
  Serious: Yes (Hospitalization, Other)
  Sender: JIANGSU HANSOH PHARMACEUTICAL GROUP CO., LTD.
  Company Number: CN-Hansoh-20252190015094

PATIENT
  Age: 43 Year
  Sex: Male
  Weight: 56 kg

DRUGS (4)
  1. GEMCITABINE [Suspect]
     Active Substance: GEMCITABINE
     Indication: Nasopharyngeal cancer
     Dosage: 1700 MG, QD
     Route: 041
     Dates: start: 20250715, end: 20250715
  2. GEMCITABINE [Suspect]
     Active Substance: GEMCITABINE
     Dosage: 1700 MG, QD
     Route: 041
     Dates: start: 20250721, end: 20250721
  3. TORIPALIMAB [Suspect]
     Active Substance: TORIPALIMAB
     Indication: Nasopharyngeal cancer
     Dosage: 240 MG, QD
     Route: 041
     Dates: start: 20250715, end: 20250715
  4. CARBOPLATIN [Suspect]
     Active Substance: CARBOPLATIN
     Indication: Nasopharyngeal cancer
     Dosage: 280 MG, QD
     Route: 041
     Dates: start: 20250715, end: 20250715

REACTIONS (3)
  - Dermatitis exfoliative [Recovering/Resolving]
  - Myelosuppression [Recovering/Resolving]
  - Off label use [Unknown]

NARRATIVE: CASE EVENT DATE: 20250729
